FAERS Safety Report 8380292-7 (Version None)
Quarter: 2012Q2

REPORT INFORMATION
  Report Type: 
  Country: None (occurrence: None)
  Receive Date: 20120523
  Receipt Date: 20120510
  Transmission Date: 20120825
  Serious: Yes (Hospitalization, Other)
  Sender: FDA-Public Use
  Company Number: US-MYLANLABS-2012S1009885

PATIENT
  Age: 8 Year
  Sex: Female

DRUGS (3)
  1. ADDERALL 5 [Concomitant]
     Route: 065
  2. CLONIDINE [Suspect]
     Dosage: QHS
     Route: 065
  3. RISPERIDONE [Concomitant]
     Route: 065

REACTIONS (4)
  - GRAND MAL CONVULSION [None]
  - MALIGNANT HYPERTENSION [None]
  - DRUG WITHDRAWAL SYNDROME [None]
  - DRUG WITHDRAWAL CONVULSIONS [None]
